FAERS Safety Report 4815176-1 (Version None)
Quarter: 2005Q4

REPORT INFORMATION
  Report Type: 
  Country: None (occurrence: None)
  Receive Date: 20051028
  Receipt Date: 20050722
  Transmission Date: 20060501
  Serious: Yes (Hospitalization, Disabling)
  Sender: FDA-Public Use
  Company Number: US-MERCK-0507USA03856

PATIENT
  Age: 51 Year
  Sex: Female
  Weight: 100 kg

DRUGS (14)
  1. ALLEGRA [Concomitant]
     Indication: HYPERSENSITIVITY
     Route: 065
     Dates: start: 20020801, end: 20020101
  2. AZMACORT [Concomitant]
     Indication: ASTHMA EXACERBATION PROPHYLAXIS
     Route: 055
     Dates: start: 20020801, end: 20021119
  3. LASIX [Concomitant]
     Indication: HYPERTENSION
     Route: 065
     Dates: start: 20020801
  4. LASIX [Concomitant]
     Indication: OEDEMA
     Route: 065
     Dates: start: 20020801
  5. FOSAMAX [Concomitant]
     Indication: OSTEOPOROSIS
     Route: 065
     Dates: start: 20021014, end: 20021119
  6. GLYBURIDE [Concomitant]
     Indication: DIABETES MELLITUS
     Route: 065
     Dates: start: 20020801
  7. IBUPROFEN [Concomitant]
     Indication: ANALGESIC EFFECT
     Route: 065
     Dates: start: 20020801, end: 20021119
  8. POTASSIUM CHLORIDE [Concomitant]
     Indication: MINERAL SUPPLEMENTATION
     Route: 065
     Dates: start: 20020801
  9. PREMARIN [Concomitant]
     Indication: HORMONE REPLACEMENT THERAPY
     Route: 065
     Dates: start: 20020801, end: 20021119
  10. PROTONIX [Concomitant]
     Indication: GASTRIC PH INCREASED
     Route: 065
     Dates: start: 20020801, end: 20021119
  11. ZOLOFT [Concomitant]
     Indication: DEPRESSION
     Route: 065
     Dates: start: 20020814
  12. CLINORIL [Concomitant]
     Indication: ARTHRALGIA
     Route: 065
     Dates: start: 20020814
  13. VIOXX [Suspect]
     Indication: ARTHRITIS
     Route: 048
     Dates: start: 20020930, end: 20021127
  14. ALBUTEROL [Concomitant]
     Indication: ASTHMA
     Route: 065
     Dates: start: 20020801, end: 20020101

REACTIONS (8)
  - ACUTE RESPIRATORY FAILURE [None]
  - BLOOD CHOLESTEROL INCREASED [None]
  - BRONCHITIS ACUTE [None]
  - CARDIAC FAILURE CONGESTIVE [None]
  - CORONARY ARTERY DISEASE [None]
  - DEPRESSION [None]
  - ISCHAEMIC CARDIOMYOPATHY [None]
  - MYOCARDIAL INFARCTION [None]
